FAERS Safety Report 22631092 (Version 3)
Quarter: 2024Q2

REPORT INFORMATION
  Report Type: Report from Study
  Country: CA (occurrence: CA)
  Receive Date: 20230622
  Receipt Date: 20240401
  Transmission Date: 20240716
  Serious: Yes (Other)
  Sender: FDA-Public Use
  Company Number: CA-ABBVIE-5300338

PATIENT
  Age: 23 Year
  Sex: Male
  Weight: 91.6 kg

DRUGS (5)
  1. UPADACITINIB [Suspect]
     Active Substance: UPADACITINIB
     Indication: Dermatitis atopic
     Route: 048
     Dates: start: 20230430, end: 20230523
  2. UPADACITINIB [Suspect]
     Active Substance: UPADACITINIB
     Indication: Dermatitis atopic
     Route: 048
     Dates: start: 20230525, end: 20230608
  3. BILASTINE [Concomitant]
     Active Substance: BILASTINE
     Indication: Hypersensitivity
     Route: 048
     Dates: start: 20230301
  4. BEPREVE [Concomitant]
     Active Substance: BEPOTASTINE BESILATE
     Indication: Hypersensitivity
     Route: 047
     Dates: start: 20230606
  5. TOBRADEX [Concomitant]
     Active Substance: DEXAMETHASONE\TOBRAMYCIN
     Indication: Hordeolum
     Dosage: 1 APPLICATION
     Route: 047
     Dates: start: 20200619, end: 20230626

REACTIONS (1)
  - Suicidal ideation [Recovered/Resolved]

NARRATIVE: CASE EVENT DATE: 20230620
